FAERS Safety Report 8423963 (Version 9)
Quarter: 2012Q4

REPORT INFORMATION
  Report Type: 
  Country: US (occurrence: US)
  Receive Date: 20120224
  Receipt Date: 20120924
  Transmission Date: 20130627
  Serious: Yes (Other)
  Sender: FDA-Public Use
  Company Number: US-PFIZER INC-2012044883

PATIENT
  Age: 52 Year
  Sex: Female
  Weight: 56.24 kg

DRUGS (4)
  1. LEVOXYL [Suspect]
     Indication: AUTOIMMUNE THYROIDITIS
     Dosage: 100 ug, 1x/day
     Route: 048
     Dates: start: 2011, end: 201202
  2. LEVOXYL [Suspect]
     Indication: HYPOTHYROIDISM
     Dosage: 100 ug, 1x/day
     Route: 048
     Dates: start: 20120217
  3. LEVOXYL [Suspect]
     Dosage: 0.05 mg, 1 tablet daily take 1st in morning,empty stomach
     Route: 048
     Dates: start: 20120531, end: 20120627
  4. CENTRUM [Concomitant]
     Dosage: UNK

REACTIONS (23)
  - Motor dysfunction [Not Recovered/Not Resolved]
  - Hypokinesia [Not Recovered/Not Resolved]
  - Hypoaesthesia [Not Recovered/Not Resolved]
  - Muscle rigidity [Not Recovered/Not Resolved]
  - Muscle spasms [Not Recovered/Not Resolved]
  - Arthralgia [Unknown]
  - Movement disorder [Unknown]
  - Gait disturbance [Unknown]
  - Coordination abnormal [Unknown]
  - Dysgraphia [Not Recovered/Not Resolved]
  - Nuchal rigidity [Unknown]
  - Parkinsonism [Unknown]
  - Activities of daily living impaired [Not Recovered/Not Resolved]
  - Musculoskeletal stiffness [Unknown]
  - Mitral valve prolapse [Unknown]
  - Insomnia [Unknown]
  - Myalgia [Recovered/Resolved]
  - Alopecia [Unknown]
  - Atrophic vulvovaginitis [Unknown]
  - Dysphonia [Unknown]
  - Salivary hypersecretion [Unknown]
  - Blood thyroid stimulating hormone increased [Unknown]
  - Thyroxine decreased [Unknown]
